FAERS Safety Report 21090506 (Version 3)
Quarter: 2022Q3

REPORT INFORMATION
  Report Type: Report from Study
  Country: BR (occurrence: BR)
  Receive Date: 20220715
  Receipt Date: 20220913
  Transmission Date: 20221026
  Serious: Yes (Hospitalization)
  Sender: FDA-Public Use
  Company Number: BR-BIOGEN-2022BI01139400

PATIENT
  Sex: Female
  Weight: 82 kg

DRUGS (2)
  1. TYSABRI [Suspect]
     Active Substance: NATALIZUMAB
     Indication: Multiple sclerosis
     Route: 050
     Dates: start: 202204
  2. ALPRAZOLAM [Concomitant]
     Active Substance: ALPRAZOLAM
     Indication: Depression
     Route: 050
     Dates: start: 202201

REACTIONS (10)
  - Multiple sclerosis relapse [Not Recovered/Not Resolved]
  - Alopecia [Unknown]
  - Somnolence [Unknown]
  - Therapeutic response shortened [Unknown]
  - Decreased immune responsiveness [Unknown]
  - Transient ischaemic attack [Recovered/Resolved with Sequelae]
  - Memory impairment [Unknown]
  - Depression [Not Recovered/Not Resolved]
  - Arthralgia [Not Recovered/Not Resolved]
  - Headache [Not Recovered/Not Resolved]

NARRATIVE: CASE EVENT DATE: 20220101
